FAERS Safety Report 7376007-1 (Version None)
Quarter: 2011Q1

REPORT INFORMATION
  Report Type: 
  Country: None (occurrence: None)
  Receive Date: 20110325
  Receipt Date: 20110314
  Transmission Date: 20110831
  Serious: Yes (Other)
  Sender: FDA-Public Use
  Company Number: PHHY2009CA49578

PATIENT
  Sex: Female

DRUGS (2)
  1. SANDOSTATIN LAR [Suspect]
     Indication: CARCINOID TUMOUR
     Dosage: 30 MG, EVERY 4 WEEKS
     Route: 030
     Dates: start: 20070725
  2. SANDOSTATIN LAR [Suspect]
     Dosage: 30 MG EVERY 2 WEEKS
     Route: 030

REACTIONS (7)
  - NEOPLASM MALIGNANT [None]
  - ASTHENIA [None]
  - HEPATIC LESION [None]
  - ALOPECIA [None]
  - BRONCHITIS [None]
  - FEELING ABNORMAL [None]
  - INFLUENZA LIKE ILLNESS [None]
